FAERS Safety Report 5351113-1 (Version None)
Quarter: 2007Q2

REPORT INFORMATION
  Report Type: 
  Country: None (occurrence: None)
  Receive Date: 20070608
  Receipt Date: 20070531
  Transmission Date: 20071010
  Serious: No
  Sender: FDA-Public Use
  Company Number: US-ASTRAZENECA-2006UW10718

PATIENT
  Age: 51 Year
  Sex: Female
  Weight: 79.5 kg

DRUGS (6)
  1. SEROQUEL [Suspect]
     Indication: BIPOLAR DISORDER
     Route: 048
     Dates: start: 20041101, end: 20060501
  2. SEROQUEL [Suspect]
     Indication: DEPRESSION
     Route: 048
     Dates: start: 20041101, end: 20060501
  3. ABILIFY [Concomitant]
     Dates: start: 20060101, end: 20070101
  4. HALDOL [Concomitant]
     Dates: start: 19800101, end: 19900101
  5. RISPERDAL [Concomitant]
     Dates: start: 19990101, end: 20000101
  6. TRILAFON [Concomitant]
     Dates: start: 20070101

REACTIONS (1)
  - DIABETES MELLITUS [None]
